FAERS Safety Report 17725946 (Version 15)
Quarter: 2021Q3

REPORT INFORMATION
  Report Type: Report from Study
  Country: GB (occurrence: GB)
  Receive Date: 20200429
  Receipt Date: 20210921
  Transmission Date: 20211014
  Serious: Yes (Hospitalization)
  Sender: FDA-Public Use
  Company Number: NVSC2020GB114448

PATIENT
  Age: 52 Year
  Sex: Female

DRUGS (7)
  1. SANDOSTATIN LAR DEPOT [Suspect]
     Active Substance: OCTREOTIDE ACETATE
     Dosage: 30 MG, Q4W
     Route: 030
  2. SANDOSTATIN LAR DEPOT [Suspect]
     Active Substance: OCTREOTIDE ACETATE
     Dosage: 30 MG, Q4W
     Route: 030
  3. SANDOSTATIN LAR DEPOT [Suspect]
     Active Substance: OCTREOTIDE ACETATE
     Dosage: 30 MG, QMO
     Route: 030
  4. SANDOSTATIN LAR DEPOT [Suspect]
     Active Substance: OCTREOTIDE ACETATE
     Dosage: 30 MG, Q4W
     Route: 030
  5. SANDOSTATIN LAR DEPOT [Suspect]
     Active Substance: OCTREOTIDE ACETATE
     Dosage: 30 MG, QMO
     Route: 030
  6. SANDOSTATIN LAR DEPOT [Suspect]
     Active Substance: OCTREOTIDE ACETATE
     Indication: NEUROENDOCRINE TUMOUR
     Dosage: 30 MG, QMO
     Route: 030
     Dates: start: 20200423
  7. SANDOSTATIN LAR DEPOT [Suspect]
     Active Substance: OCTREOTIDE ACETATE
     Dosage: 30 MG, Q4W
     Route: 030

REACTIONS (18)
  - Joint swelling [Not Recovered/Not Resolved]
  - Device occlusion [Unknown]
  - Dyspnoea [Unknown]
  - Abdominal distension [Unknown]
  - Blood sodium decreased [Unknown]
  - COVID-19 [Unknown]
  - Nasal congestion [Unknown]
  - Pruritus [Unknown]
  - Limb discomfort [Unknown]
  - Ageusia [Unknown]
  - Blood bilirubin increased [Not Recovered/Not Resolved]
  - Fatigue [Unknown]
  - Needle issue [Unknown]
  - Abdominal abscess [Unknown]
  - Infection [Unknown]
  - Anosmia [Unknown]
  - Fall [Not Recovered/Not Resolved]
  - Wound complication [Unknown]

NARRATIVE: CASE EVENT DATE: 20200620
